FAERS Safety Report 17891621 (Version 6)
Quarter: 2023Q1

REPORT INFORMATION
  Report Type: Spontaneous
  Country: BR (occurrence: BR)
  Receive Date: 20200612
  Receipt Date: 20230330
  Transmission Date: 20230417
  Serious: Yes (Other)
  Sender: FDA-Public Use
  Company Number: BR-GLAXOSMITHKLINE-BR2018GSK151493

PATIENT

DRUGS (3)
  1. BENLYSTA [Suspect]
     Active Substance: BELIMUMAB
     Indication: Systemic lupus erythematosus
     Dosage: 720 MG
     Dates: start: 20180524, end: 20210915
  2. BENLYSTA [Suspect]
     Active Substance: BELIMUMAB
     Dosage: 720 MG
     Dates: end: 20220324
  3. BENLYSTA [Suspect]
     Active Substance: BELIMUMAB
     Dosage: 120 MG
     Route: 042
     Dates: start: 20180524

REACTIONS (15)
  - Systemic lupus erythematosus [Unknown]
  - Influenza [Unknown]
  - Infection [Recovered/Resolved]
  - Weight fluctuation [Unknown]
  - Disease recurrence [Unknown]
  - Arthralgia [Unknown]
  - Sluggishness [Unknown]
  - Viral infection [Recovered/Resolved]
  - Illness [Recovered/Resolved]
  - Pyrexia [Unknown]
  - Underdose [Unknown]
  - Inappropriate schedule of product administration [Not Recovered/Not Resolved]
  - Product dose omission issue [Unknown]
  - Product availability issue [Unknown]
  - Circumstance or information capable of leading to medication error [Recovered/Resolved]

NARRATIVE: CASE EVENT DATE: 20200510
